FAERS Safety Report 11313339 (Version 1)
Quarter: 2015Q3

REPORT INFORMATION
  Report Type: Spontaneous
  Country: US (occurrence: None)
  Receive Date: 20150724
  Receipt Date: 20150724
  Transmission Date: 20151125
  Serious: No
  Sender: FDA-Public Use
  Company Number: None

PATIENT
  Age: 27 Year
  Sex: Female
  Weight: 99.79 kg

DRUGS (8)
  1. LEVOTHYROXIN [Concomitant]
     Active Substance: LEVOTHYROXINE
  2. BUTRANS [Concomitant]
     Active Substance: BUPRENORPHINE
  3. TAPAMAX [Concomitant]
  4. PERCOCET [Concomitant]
     Active Substance: ACETAMINOPHEN\OXYCODONE HYDROCHLORIDE
  5. LIOTHYRONINE [Concomitant]
     Active Substance: LIOTHYRONINE
  6. PENNSAID [Suspect]
     Active Substance: DICLOFENAC SODIUM
     Indication: DRUG THERAPY
     Dosage: 2% PUMP X 2; APPLIED TO A SURFACE, USUALLY THE SKIN
     Dates: start: 20150722, end: 20150723
  7. AMBIEN CR [Concomitant]
     Active Substance: ZOLPIDEM TARTRATE
  8. SPRINTEC [Concomitant]
     Active Substance: ETHINYL ESTRADIOL\NORGESTIMATE

REACTIONS (2)
  - Pruritus [None]
  - Erythema [None]

NARRATIVE: CASE EVENT DATE: 20150722
